FAERS Safety Report 5293597-3 (Version None)
Quarter: 2007Q2

REPORT INFORMATION
  Report Type: 
  Country: None (occurrence: None)
  Receive Date: 20070405
  Receipt Date: 20070321
  Transmission Date: 20071010
  Serious: Yes (Hospitalization)
  Sender: FDA-Public Use
  Company Number: 6028926

PATIENT
  Age: 62 Year
  Sex: Female

DRUGS (4)
  1. LEVOTHYROXINE SODIUM [Suspect]
     Indication: THYROIDECTOMY
     Dosage: 1 DOSAGE; ORAL
     Route: 048
     Dates: start: 19960501
  2. UN-ALFA (CAPSULE) (ALFACALCIDOL) [Suspect]
     Indication: DRUG USE FOR UNKNOWN INDICATION
     Dosage: 1 DOSAGE; ORAL
     Route: 048
     Dates: start: 20060501
  3. TEATROIS (TABLET) (TIRATRICOL) [Suspect]
     Indication: DRUG USE FOR UNKNOWN INDICATION
     Dosage: 1 DOSAGE FORMS (1 DOSAGE FORMS, 1 D); ORAL
     Route: 048
     Dates: start: 20060501
  4. LAMICTAL [Suspect]
     Indication: EPILEPSY
     Dosage: 125 MG (125 MG, 1 D); ORAL
     Route: 048
     Dates: start: 19970401

REACTIONS (1)
  - MYCOSIS FUNGOIDES [None]
